FAERS Safety Report 7116939-2 (Version None)
Quarter: 2010Q4

REPORT INFORMATION
  Report Type: 
  Country: None (occurrence: None)
  Receive Date: 20101122
  Receipt Date: 20101110
  Transmission Date: 20110411
  Serious: Yes (Hospitalization)
  Sender: FDA-Public Use
  Company Number: SE-JNJFOC-20101102226

PATIENT
  Sex: Female
  Weight: 1.86 kg

DRUGS (1)
  1. INFLIXIMAB [Suspect]
     Indication: DRUG EXPOSURE DURING PREGNANCY
     Route: 064

REACTIONS (3)
  - OTITIS MEDIA [None]
  - PREMATURE BABY [None]
  - RESPIRATORY SYNCYTIAL VIRUS BRONCHIOLITIS [None]
